FAERS Safety Report 25564782 (Version 1)
Quarter: 2025Q3

REPORT INFORMATION
  Report Type: Spontaneous
  Country: US (occurrence: None)
  Receive Date: 20250715
  Receipt Date: 20250715
  Transmission Date: 20251020
  Serious: Yes (Death)
  Sender: FDA-CTU
  Company Number: None

PATIENT
  Age: 87 Year
  Sex: Male

DRUGS (1)
  1. POMALYST [Suspect]
     Active Substance: POMALIDOMIDE
     Indication: Plasma cell myeloma
     Dosage: 2MG QD ORAL
     Route: 048
     Dates: start: 20241206, end: 20250705

REACTIONS (5)
  - Sepsis [None]
  - Multiple organ dysfunction syndrome [None]
  - Pneumonia [None]
  - Mental status changes [None]
  - Malaise [None]

NARRATIVE: CASE EVENT DATE: 20250705
